FAERS Safety Report 9022595 (Version 1)
Quarter: 2013Q1

REPORT INFORMATION
  Report Type: Spontaneous
  Country: US (occurrence: US)
  Receive Date: 20130118
  Receipt Date: 20130118
  Transmission Date: 20140127
  Serious: No
  Sender: FDA-Public Use
  Company Number: US-GLAXOSMITHKLINE-A0995626A

PATIENT
  Age: 56 Year
  Sex: Female

DRUGS (5)
  1. PROMACTA [Suspect]
     Indication: IDIOPATHIC THROMBOCYTOPENIC PURPURA
     Dosage: 75MG ALTERNATE DAYS
     Route: 048
     Dates: start: 201201
  2. ESCITALOPRAM [Concomitant]
  3. LEVOTHYROXINE [Concomitant]
  4. FLAX SEED [Concomitant]
  5. VITAMIN D [Concomitant]

REACTIONS (1)
  - Thrombocytopenia [Recovering/Resolving]
